FAERS Safety Report 6005085-7 (Version None)
Quarter: 2008Q4

REPORT INFORMATION
  Report Type: 
  Country: None (occurrence: None)
  Receive Date: 20081216
  Receipt Date: 20081209
  Transmission Date: 20090506
  Serious: Yes (Other)
  Sender: FDA-Public Use
  Company Number: PHHY2008AU30606

PATIENT
  Sex: Male

DRUGS (1)
  1. GLEEVEC [Suspect]
     Indication: CHRONIC MYELOID LEUKAEMIA
     Dosage: 400 MG, UNK
     Dates: start: 20080901, end: 20081130

REACTIONS (7)
  - ASTHENIA [None]
  - DIARRHOEA [None]
  - DYSPHONIA [None]
  - GINGIVAL PAIN [None]
  - MOUTH ULCERATION [None]
  - MUSCLE SPASMS [None]
  - OEDEMA PERIPHERAL [None]
